FAERS Safety Report 8887756 (Version 1)
Quarter: 2012Q4

REPORT INFORMATION
  Report Type: 
  Country: BR (occurrence: BR)
  Receive Date: 20121106
  Receipt Date: 20121106
  Transmission Date: 20130627
  Serious: Yes (Other)
  Sender: FDA-Public Use
  Company Number: BR-ELI_LILLY_AND_COMPANY-BR201209002589

PATIENT
  Sex: Female

DRUGS (3)
  1. FORTEO [Suspect]
     Indication: OSTEOPOROSIS
     Dosage: 20 ug, qd
     Route: 058
     Dates: start: 201102, end: 201207
  2. CAPTOPRIL [Concomitant]
     Dosage: UNK, unknown
     Route: 065
  3. ENALAPRIL [Concomitant]
     Dosage: UNK, unknown
     Route: 065

REACTIONS (6)
  - Dyspnoea [Unknown]
  - Cataract operation [Unknown]
  - Malaise [Unknown]
  - Feeling abnormal [Unknown]
  - Hypoaesthesia [Unknown]
  - Haematoma [Unknown]
